FAERS Safety Report 4458463-1 (Version None)
Quarter: 2004Q3

REPORT INFORMATION
  Report Type: 
  Country: None (occurrence: None)
  Receive Date: 20040922
  Receipt Date: 20040330
  Transmission Date: 20050211
  Serious: Yes (Hospitalization)
  Sender: FDA-Public Use
  Company Number: US-SHR-04-021071

PATIENT
  Age: 45 Year
  Sex: Male
  Weight: 76.2 kg

DRUGS (1)
  1. BETASERON [Suspect]
     Indication: MULTIPLE SCLEROSIS
     Dosage: 8 MIU, EVERY 2D, SUBCUTANEOUS
     Route: 058

REACTIONS (3)
  - HERPES SIMPLEX [None]
  - MULTIPLE SCLEROSIS [None]
  - TINEA INFECTION [None]
